FAERS Safety Report 7400073-8 (Version None)
Quarter: 2011Q2

REPORT INFORMATION
  Report Type: 
  Country: None (occurrence: None)
  Receive Date: 20110407
  Receipt Date: 20110404
  Transmission Date: 20111010
  Serious: No
  Sender: FDA-Public Use
  Company Number: US-B.I. PHARMACEUTICALS,INC./RIDGEFIELD-2011-BP-08698BP

PATIENT
  Age: 90 Year
  Sex: Female

DRUGS (1)
  1. ZANTAC 75 [Suspect]
     Dates: start: 20110301

REACTIONS (1)
  - ERUCTATION [None]
